FAERS Safety Report 8598465-7 (Version None)
Quarter: 2012Q3

REPORT INFORMATION
  Report Type: 
  Country: None (occurrence: None)
  Receive Date: 20120816
  Receipt Date: 20120813
  Transmission Date: 20120928
  Serious: Yes (Hospitalization)
  Sender: FDA-Public Use
  Company Number: US-ROCHE-1063678

PATIENT
  Sex: Male
  Weight: 75.29 kg

DRUGS (7)
  1. PEGASYS [Suspect]
     Indication: HEPATITIS C
     Dates: start: 20111020, end: 20120315
  2. COPEGUS [Suspect]
     Indication: HEPATITIS C
     Dates: start: 20111020, end: 20120325
  3. FOSAMAX [Concomitant]
     Dates: start: 20111110
  4. GABAPENTIN [Concomitant]
     Dates: start: 20111110
  5. ACYCLOVIR [Concomitant]
     Dates: start: 20120105, end: 20120112
  6. BLINDED ALISPORIVIR [Suspect]
     Indication: HEPATITIS C
     Route: 048
     Dates: start: 20111020, end: 20120325
  7. LIDEX [Concomitant]
     Dates: start: 20120112, end: 20120202

REACTIONS (4)
  - PNEUMONIA [None]
  - DIABETIC KETOACIDOSIS [None]
  - PANCREATITIS [None]
  - TYPE 2 DIABETES MELLITUS [None]
